FAERS Safety Report 15750473 (Version 1)
Quarter: 2018Q4

REPORT INFORMATION
  Report Type: Report from Study
  Country: CA (occurrence: CA)
  Receive Date: 20181221
  Receipt Date: 20181221
  Transmission Date: 20190205
  Serious: Yes (Hospitalization)
  Sender: FDA-Public Use
  Company Number: CA-JNJFOC-20181207084

PATIENT
  Age: 19 Year
  Sex: Male
  Weight: 62 kg

DRUGS (1)
  1. REMICADE [Suspect]
     Active Substance: INFLIXIMAB
     Indication: COLITIS ULCERATIVE
     Dosage: STRENGTH = 100 MG
     Route: 042
     Dates: start: 201811

REACTIONS (7)
  - Respiration abnormal [Recovered/Resolved]
  - Myalgia [Unknown]
  - Infusion related reaction [Recovered/Resolved]
  - Colectomy [Unknown]
  - Arthralgia [Unknown]
  - Clostridium difficile infection [Not Recovered/Not Resolved]
  - Haemoglobin decreased [Unknown]

NARRATIVE: CASE EVENT DATE: 2018
